FAERS Safety Report 4630053-7 (Version None)
Quarter: 2005Q2

REPORT INFORMATION
  Report Type: 
  Country: None (occurrence: None)
  Receive Date: 20050406
  Receipt Date: 20050321
  Transmission Date: 20051028
  Serious: Yes (Life-Threatening)
  Sender: FDA-Public Use
  Company Number: 10666

PATIENT
  Age: 74 Year
  Sex: Male

DRUGS (4)
  1. NITROGLYCERIN [Suspect]
     Indication: DIAGNOSTIC PROCEDURE
     Dosage: 400 MCG/KG
     Route: 060
  2. BENDROFLUAZIDE [Concomitant]
  3. SIMVASTATIN [Concomitant]
  4. THYROXINE [Concomitant]

REACTIONS (4)
  - BLOOD CREATINE PHOSPHOKINASE INCREASED [None]
  - CORONARY ARTERY DISEASE [None]
  - HYPOTENSION [None]
  - MYOCARDIAL INFARCTION [None]
